FAERS Safety Report 17396017 (Version 1)
Quarter: 2020Q1

REPORT INFORMATION
  Report Type: Spontaneous
  Country: US (occurrence: US)
  Receive Date: 20200210
  Receipt Date: 20200210
  Transmission Date: 20200409
  Serious: No
  Sender: FDA-Public Use
  Company Number: US-VERTEX PHARMACEUTICALS-2020-002003

PATIENT
  Sex: Female

DRUGS (6)
  1. BENADRYL [Concomitant]
     Active Substance: DIPHENHYDRAMINE HYDROCHLORIDE
     Dosage: 25 MILLIGRAM CAPSULE
  2. ORKAMBI [Suspect]
     Active Substance: IVACAFTOR\LUMACAFTOR
     Indication: CYSTIC FIBROSIS
     Dosage: 200/125 MG, 2 TABS BID
     Route: 048
     Dates: start: 20170701
  3. PULMOZYME [Concomitant]
     Active Substance: DORNASE ALFA
  4. BIOTIN [Concomitant]
     Active Substance: BIOTIN
     Dosage: 10 MILLIGRAM TABLET
  5. VITAMIN D [COLECALCIFEROL] [Concomitant]
     Active Substance: CHOLECALCIFEROL
     Dosage: 10 MICROGRAM TABLET
  6. LYSINE [Concomitant]
     Active Substance: LYSINE
     Dosage: 1000 MILLIGRAM TABLET

REACTIONS (2)
  - Nasopharyngitis [Unknown]
  - Sinusitis [Unknown]
